FAERS Safety Report 26028836 (Version 1)
Quarter: 2025Q4

REPORT INFORMATION
  Report Type: Report from Study
  Country: US (occurrence: US)
  Receive Date: 20251112
  Receipt Date: 20251112
  Transmission Date: 20260118
  Serious: Yes (Other)
  Sender: ABBVIE
  Company Number: US-ALLERGAN-2106835US

PATIENT
  Age: 27 Year
  Sex: Female

DRUGS (7)
  1. CELEXA [Suspect]
     Active Substance: CITALOPRAM HYDROBROMIDE
     Indication: Depression
     Dosage: UNK (LMP - DELIVERY)
     Route: 048
  2. CELEXA [Suspect]
     Active Substance: CITALOPRAM HYDROBROMIDE
     Indication: Depression
     Dosage: DOSE DESC: UNK
     Route: 048
     Dates: end: 20190815
  3. REXULTI [Suspect]
     Active Substance: BREXPIPRAZOLE
     Indication: Bipolar disorder
     Dosage: 2 MG, (BEFORE LMP - DELIVERY)
     Route: 065
     Dates: end: 20190815
  4. XANAX [Concomitant]
     Active Substance: ALPRAZOLAM
     Indication: Anxiety
     Dosage: BEFORE LMP - 6 WEEKS PREGNANT
  5. MELOXICAM [Concomitant]
     Active Substance: MELOXICAM
     Indication: Back pain
     Dosage: BEFORE LMP - 6 WEEKS PREGNANT
  6. METFORMIN [Concomitant]
     Active Substance: METFORMIN HYDROCHLORIDE
     Indication: Polycystic ovarian syndrome
     Dosage: BEFORE LMP - 8 WEEKS PREGNANT
  7. OMEPRAZOLE [Concomitant]
     Active Substance: OMEPRAZOLE
     Indication: Product used for unknown indication
     Dosage: BEFORE LMP - 6 WEEKS PREGNANT

REACTIONS (6)
  - Gestational diabetes [Recovered/Resolved]
  - Renal pain [Unknown]
  - Maternal exposure during pregnancy [Unknown]
  - Off label use [Unknown]
  - Product use in unapproved indication [Unknown]
  - Live birth [Unknown]

NARRATIVE: CASE EVENT DATE: 20190301
